FAERS Safety Report 19393276 (Version 1)
Quarter: 2021Q2

REPORT INFORMATION
  Report Type: Spontaneous
  Country: US (occurrence: US)
  Receive Date: 20210609
  Receipt Date: 20210609
  Transmission Date: 20210717
  Serious: No
  Sender: FDA-Public Use
  Company Number: US-TRIS PHARMA, INC.-21US009469

PATIENT

DRUGS (1)
  1. HYDROCODONE + APAP [Suspect]
     Active Substance: ACETAMINOPHEN\HYDROCODONE BITARTRATE
     Indication: PAIN
     Route: 065

REACTIONS (5)
  - Drug ineffective [Unknown]
  - Back pain [Unknown]
  - Pain in extremity [Unknown]
  - Dizziness [Unknown]
  - Pain [Unknown]
